FAERS Safety Report 17502445 (Version 1)
Quarter: 2020Q1

REPORT INFORMATION
  Report Type: Spontaneous
  Country: US (occurrence: US)
  Receive Date: 20200305
  Receipt Date: 20200305
  Transmission Date: 20200409
  Serious: Yes (Other)
  Sender: FDA-Public Use
  Company Number: US-PFIZER INC-2018213032

PATIENT
  Age: 67 Year
  Sex: Female
  Weight: 74 kg

DRUGS (6)
  1. GENOTROPIN [Suspect]
     Active Substance: SOMATROPIN
     Dosage: 0.6 MG INJECTION DAILY
     Dates: start: 201506
  2. GENOTROPIN [Suspect]
     Active Substance: SOMATROPIN
     Dosage: UNK
  3. ARMOUR THYROID [Concomitant]
     Active Substance: THYROID, PORCINE
     Indication: HYPOTHYROIDISM
     Dosage: 60 MG, 1X/DAY [30MG TWO TABLETS ONCE A DAY BY MOUTH; 1YEAR AGO]
     Route: 048
     Dates: start: 2017
  4. GENOTROPIN [Suspect]
     Active Substance: SOMATROPIN
     Indication: HYPOPITUITARISM
     Dosage: 5 MG, 1X/DAY(5MG INJECTION ONCE A DAY)
     Dates: start: 2015
  5. GENOTROPIN [Suspect]
     Active Substance: SOMATROPIN
     Dosage: DAILY [^05; 3 YEARS^]
  6. GENOTROPIN [Suspect]
     Active Substance: SOMATROPIN
     Dosage: 0.6 MG, DAILY(0.6MG/DAY 7 DAYS/WK)
     Dates: start: 20150610

REACTIONS (5)
  - Pain in extremity [Recovered/Resolved]
  - Skin laceration [Unknown]
  - Peripheral swelling [Recovered/Resolved]
  - Device issue [Recovered/Resolved]
  - Craniocerebral injury [Unknown]

NARRATIVE: CASE EVENT DATE: 20180319
